FAERS Safety Report 9289332 (Version 2)
Quarter: 2013Q2

REPORT INFORMATION
  Report Type: Spontaneous
  Country: US (occurrence: US)
  Receive Date: 20130514
  Receipt Date: 20130522
  Transmission Date: 20140414
  Serious: Yes (Hospitalization, Other)
  Sender: FDA-Public Use
  Company Number: US-PFIZER INC-2013144026

PATIENT
  Age: 70 Year
  Sex: Male
  Weight: 67.57 kg

DRUGS (4)
  1. REVATIO [Suspect]
     Indication: CREST SYNDROME
     Dosage: 20 MG, 2X/DAY
  2. REVATIO [Suspect]
     Dosage: 125 MG, 2X/DAY
     Route: 048
  3. METHOTREXATE [Suspect]
     Indication: CREST SYNDROME
     Dosage: 0.8 MG, WEEKLY
     Dates: end: 201305
  4. TRACLEER [Concomitant]
     Indication: CARDIAC FIBRILLATION
     Dosage: 125 MG, 2X/DAY

REACTIONS (10)
  - Hepatic cirrhosis [Not Recovered/Not Resolved]
  - Hepatic infection [Not Recovered/Not Resolved]
  - Gastric infection [Not Recovered/Not Resolved]
  - Gastritis [Not Recovered/Not Resolved]
  - Liver prolapse [Not Recovered/Not Resolved]
  - Malaise [Not Recovered/Not Resolved]
  - Weight decreased [Not Recovered/Not Resolved]
  - Malaise [Not Recovered/Not Resolved]
  - Abdominal distension [Not Recovered/Not Resolved]
  - Off label use [Not Recovered/Not Resolved]
